FAERS Safety Report 7329313-0 (Version None)
Quarter: 2011Q1

REPORT INFORMATION
  Report Type: 
  Country: None (occurrence: None)
  Receive Date: 20110222
  Receipt Date: 20110210
  Transmission Date: 20110831
  Serious: Yes (Other)
  Sender: FDA-Public Use
  Company Number: 2011MA000860

PATIENT
  Age: 36 Year
  Sex: Male

DRUGS (2)
  1. MIRTAZAPINE [Suspect]
     Indication: DEPRESSION
     Dosage: 30 MG, PO
     Route: 048
     Dates: start: 20110112, end: 20110114
  2. MIRTAZAPINE [Suspect]
     Indication: ANXIETY
     Dosage: 30 MG, PO
     Route: 048
     Dates: start: 20110112, end: 20110114

REACTIONS (3)
  - PERSECUTORY DELUSION [None]
  - PARANOIA [None]
  - ILLUSION [None]
